FAERS Safety Report 8089214-X (Version None)
Quarter: 2012Q1

REPORT INFORMATION
  Report Type: 
  Country: None (occurrence: None)
  Receive Date: 20120128
  Receipt Date: 20110628
  Transmission Date: 20120608
  Serious: No
  Sender: FDA-Public Use
  Company Number: US-ABBOTT-11P-163-0834685-00

PATIENT
  Sex: Male

DRUGS (2)
  1. NORCO [Suspect]
     Indication: SURGERY
     Dates: start: 20110501
  2. HUMIRA [Suspect]
     Indication: CROHN'S DISEASE
     Dates: start: 20110601

REACTIONS (1)
  - CONSTIPATION [None]
